FAERS Safety Report 4514536-6 (Version None)
Quarter: 2004Q4

REPORT INFORMATION
  Report Type: 
  Country: None (occurrence: None)
  Receive Date: 20040928
  Receipt Date: 20040610
  Transmission Date: 20050328
  Serious: No
  Sender: FDA-Public Use
  Company Number: 04P-163-0263596-00

PATIENT
  Age: 65 Year
  Sex: Female
  Weight: 111.5849 kg

DRUGS (5)
  1. HUMIRA [Suspect]
     Indication: RHEUMATOID ARTHRITIS
     Dosage: 40 MG, SUBCUTANEOUS
     Route: 058
     Dates: start: 20040527
  2. PREDNISONE [Concomitant]
  3. IBUPROFEN [Concomitant]
  4. NIFEDIPINE [Concomitant]
  5. CALCIUM CARBONATE [Concomitant]

REACTIONS (1)
  - CYSTITIS [None]
